FAERS Safety Report 9277282 (Version 68)
Quarter: 2023Q4

REPORT INFORMATION
  Report Type: Other
  Country: CA (occurrence: None)
  Receive Date: 20130508
  Receipt Date: 20231031
  Transmission Date: 20240109
  Serious: Yes (Life-Threatening, Hospitalization, Other)
  Sender: FDA-Public Use
  Company Number: CA-ROCHE-1195126

PATIENT
  Sex: Male
  Weight: 97 kg

DRUGS (31)
  1. RITUXAN [Suspect]
     Active Substance: RITUXIMAB
     Indication: Granulomatosis with polyangiitis
     Route: 042
     Dates: start: 20140909, end: 20140930
  2. RITUXAN [Suspect]
     Active Substance: RITUXIMAB
     Indication: Polychondritis
  3. ACTEMRA [Suspect]
     Active Substance: TOCILIZUMAB
     Indication: Polychondritis
     Dosage: TWO DOSES IN HOSPITAL.
     Route: 042
  4. ACTEMRA [Suspect]
     Active Substance: TOCILIZUMAB
     Indication: Granulomatosis with polyangiitis
     Route: 042
     Dates: start: 2012
  5. ACTEMRA [Suspect]
     Active Substance: TOCILIZUMAB
     Indication: Vasculitis necrotising
     Dosage: FIRST RPAP INFUSION: 25/JAN/2013
     Route: 042
     Dates: start: 20130125, end: 20130222
  6. ACTEMRA [Suspect]
     Active Substance: TOCILIZUMAB
     Indication: Myelodysplastic syndrome
     Dosage: MOST RECENT INFUSION: 22/DEC/2017 720 MG
     Route: 042
     Dates: start: 20130321, end: 20140430
  7. ACTEMRA [Suspect]
     Active Substance: TOCILIZUMAB
     Dosage: TWO DOSES IN HOSPITAL. BATCH/LOT NOT PROVIDED
     Route: 042
     Dates: start: 20150727
  8. ACTEMRA [Suspect]
     Active Substance: TOCILIZUMAB
     Dosage: MOST RECENT INFUSION: 22/DEC/2017 720 MG
     Route: 042
     Dates: start: 20160304
  9. ACTEMRA [Suspect]
     Active Substance: TOCILIZUMAB
     Dosage: ROUTE: SUBCUTANEOUS, START DATE: 20/MAR/2015, END DATE:  /JUN/2015,?PREVIOUS INFUSION: 28/JUN/2023
     Route: 042
     Dates: end: 20130222
  10. CYCLOBENZAPRINE [Suspect]
     Active Substance: CYCLOBENZAPRINE
     Indication: Product used for unknown indication
     Route: 065
  11. OXYCODONE [Suspect]
     Active Substance: OXYCODONE
     Indication: Product used for unknown indication
     Route: 065
  12. ACTEMRA [Suspect]
     Active Substance: TOCILIZUMAB
     Indication: Polychondritis
     Route: 058
     Dates: start: 20150320, end: 201506
  13. ACTEMRA [Suspect]
     Active Substance: TOCILIZUMAB
     Indication: Granulomatosis with polyangiitis
  14. ACTEMRA [Suspect]
     Active Substance: TOCILIZUMAB
     Indication: Vasculitis necrotising
  15. ACTEMRA [Suspect]
     Active Substance: TOCILIZUMAB
     Indication: Myelodysplastic syndrome
  16. ENBREL [Concomitant]
     Active Substance: ETANERCEPT
  17. CLOBETASOL [Concomitant]
     Active Substance: CLOBETASOL
  18. PANTOPRAZOLE SODIUM [Concomitant]
     Active Substance: PANTOPRAZOLE SODIUM
  19. VALTREX [Concomitant]
     Active Substance: VALACYCLOVIR HYDROCHLORIDE
  20. RISEDRONATE SODIUM [Concomitant]
     Active Substance: RISEDRONATE SODIUM
  21. DIPHENHYDRAMINE HYDROCHLORIDE [Concomitant]
     Active Substance: DIPHENHYDRAMINE HYDROCHLORIDE
     Indication: Premedication
     Route: 048
     Dates: start: 20140909, end: 20140930
  22. ACETAMINOPHEN [Concomitant]
     Active Substance: ACETAMINOPHEN
     Indication: Premedication
     Route: 048
     Dates: start: 20140909, end: 20140930
  23. METHYLPREDNISOLONE [Concomitant]
     Active Substance: METHYLPREDNISOLONE
     Indication: Premedication
     Route: 042
     Dates: start: 20140909, end: 20140930
  24. SULFATRIM [Concomitant]
     Active Substance: SULFAMETHOXAZOLE\TRIMETHOPRIM
  25. PREDNISONE [Concomitant]
     Active Substance: PREDNISONE
  26. METFORMIN [Concomitant]
     Active Substance: METFORMIN HYDROCHLORIDE
  27. CALCIUM [Concomitant]
     Active Substance: CALCIUM
     Indication: Product used for unknown indication
  28. RISEDRONATE SODIUM [Concomitant]
     Active Substance: RISEDRONATE SODIUM
  29. HUMIRA [Concomitant]
     Active Substance: ADALIMUMAB
  30. KINERET [Concomitant]
     Active Substance: ANAKINRA
  31. METHOTREXATE [Concomitant]
     Active Substance: METHOTREXATE

REACTIONS (55)
  - Acute respiratory distress syndrome [Unknown]
  - Infection [Unknown]
  - Abdominal pain upper [Unknown]
  - Chest pain [Unknown]
  - Pneumonia [Recovered/Resolved]
  - Panniculitis [Unknown]
  - Thrombophlebitis [Not Recovered/Not Resolved]
  - Heart rate abnormal [Unknown]
  - Thrombosis [Not Recovered/Not Resolved]
  - Therapeutic product effect decreased [Unknown]
  - White blood cell count decreased [Not Recovered/Not Resolved]
  - Confusional state [Unknown]
  - Tendon injury [Not Recovered/Not Resolved]
  - Neutropenia [Unknown]
  - Polychondritis [Unknown]
  - Cutaneous vasculitis [Not Recovered/Not Resolved]
  - Vasculitis necrotising [Not Recovered/Not Resolved]
  - Cellulitis [Recovered/Resolved]
  - Ureterolithiasis [Unknown]
  - Calculus bladder [Unknown]
  - Scleritis [Unknown]
  - Diabetes mellitus [Unknown]
  - Arthralgia [Recovered/Resolved]
  - Weight increased [Not Recovered/Not Resolved]
  - Blood pressure diastolic abnormal [Unknown]
  - Bone pain [Not Recovered/Not Resolved]
  - Pain in extremity [Not Recovered/Not Resolved]
  - Influenza [Unknown]
  - Pain [Unknown]
  - Joint swelling [Unknown]
  - Peripheral swelling [Unknown]
  - Off label use [Unknown]
  - Granulomatosis with polyangiitis [Not Recovered/Not Resolved]
  - Heart rate increased [Unknown]
  - Nasopharyngitis [Not Recovered/Not Resolved]
  - Oxygen saturation decreased [Unknown]
  - Ear pain [Recovering/Resolving]
  - Ear infection [Not Recovered/Not Resolved]
  - Abdominal pain [Recovering/Resolving]
  - Investigation abnormal [Recovering/Resolving]
  - Muscular weakness [Unknown]
  - Muscle fatigue [Recovered/Resolved]
  - Gait disturbance [Recovered/Resolved]
  - Arthropod bite [Unknown]
  - Infected bite [Unknown]
  - Heart rate decreased [Unknown]
  - Blood pressure systolic increased [Unknown]
  - Drug hypersensitivity [Unknown]
  - Gait inability [Unknown]
  - Dyspnoea [Unknown]
  - Hypotension [Unknown]
  - Myalgia [Unknown]
  - Weight decreased [Unknown]
  - Myelodysplastic syndrome transformation [Unknown]
  - Localised infection [Not Recovered/Not Resolved]

NARRATIVE: CASE EVENT DATE: 20130101
